FAERS Safety Report 8438783-6 (Version None)
Quarter: 2012Q2

REPORT INFORMATION
  Report Type: 
  Country: None (occurrence: None)
  Receive Date: 20120607
  Receipt Date: 20120531
  Transmission Date: 20120825
  Serious: Yes (Other)
  Sender: FDA-Public Use
  Company Number: DSA_55039_2012

PATIENT
  Sex: Female
  Weight: 52.6173 kg

DRUGS (6)
  1. XENAZINE [Suspect]
  2. BOTOX [Concomitant]
  3. XENAZINE [Suspect]
     Indication: DYSKINESIA
     Dosage: (12.5 MG BID ORAL), (12.5 MG BID ORAL)
     Route: 048
     Dates: start: 20111228
  4. ASPIRIN [Concomitant]
  5. CLONAZEPAM [Concomitant]
  6. LEXAPRO [Concomitant]

REACTIONS (9)
  - SALIVARY HYPERSECRETION [None]
  - FEELING ABNORMAL [None]
  - DISEASE RECURRENCE [None]
  - DYSKINESIA [None]
  - WEIGHT DECREASED [None]
  - UNRESPONSIVE TO STIMULI [None]
  - LIP DISORDER [None]
  - ANXIETY [None]
  - PALPITATIONS [None]
